FAERS Safety Report 5854553-7 (Version None)
Quarter: 2008Q3

REPORT INFORMATION
  Report Type: 
  Country: None (occurrence: None)
  Receive Date: 20080822
  Receipt Date: 20071001
  Transmission Date: 20090109
  Serious: No
  Sender: FDA-Public Use
  Company Number: US-ABBOTT-07P-163-0419160-00

PATIENT
  Sex: Female
  Weight: 74.91 kg

DRUGS (8)
  1. SYNTHROID [Suspect]
     Indication: THYROIDECTOMY
     Route: 048
     Dates: end: 20070915
  2. SYNTHROID [Suspect]
     Route: 048
     Dates: start: 20070915
  3. TRAMADOL HCL [Concomitant]
     Indication: BURSITIS
     Route: 048
  4. JANUMET [Concomitant]
     Indication: DIABETES MELLITUS
     Route: 048
  5. IRBESARTAN [Concomitant]
     Indication: HYPERTENSION
     Route: 048
  6. ROSUVASTATIN [Concomitant]
     Indication: BLOOD CHOLESTEROL INCREASED
     Route: 048
  7. ESOMEPRAZOLE MAGNESIUM [Concomitant]
     Indication: PROPHYLAXIS AGAINST GASTROINTESTINAL ULCER
     Route: 048
  8. MELOXICAM [Concomitant]
     Indication: BURSITIS
     Route: 048

REACTIONS (2)
  - BLOOD THYROID STIMULATING HORMONE INCREASED [None]
  - FATIGUE [None]
